FAERS Safety Report 9604405 (Version 1)
Quarter: 2013Q4

REPORT INFORMATION
  Report Type: Report from Study
  Country: JP (occurrence: JP)
  Receive Date: 20131008
  Receipt Date: 20131008
  Transmission Date: 20140711
  Serious: Yes (Death, Hospitalization)
  Sender: FDA-Public Use
  Company Number: JP-AMGEN-JPNCT2013069380

PATIENT
  Age: 81 Year
  Sex: Male
  Weight: 76 kg

DRUGS (13)
  1. DARBEPOETIN ALFA [Suspect]
     Indication: NEPHROGENIC ANAEMIA
     Dosage: 60 MG, Q4WK
     Route: 058
     Dates: start: 20110627, end: 20110921
  2. HERLAT [Concomitant]
     Dosage: UNK UNK, UNK
     Route: 048
  3. DOXAZOSIN M [Concomitant]
     Dosage: UNK UNK, UNK
     Route: 048
  4. ALCENOL [Concomitant]
     Dosage: UNK UNK, UNK
     Route: 048
  5. PREDONINE [Concomitant]
     Indication: NEPHROSCLEROSIS
     Dosage: UNK UNK, UNK
     Route: 048
  6. APONOL [Concomitant]
     Dosage: UNK
     Route: 048
  7. MUCOSTA [Concomitant]
     Dosage: UNK
     Route: 048
  8. MAGNESIUM OXIDE [Concomitant]
     Dosage: UNK
     Route: 048
  9. RABEPRAZOLE NA [Concomitant]
     Dosage: UNK
     Route: 048
  10. VESICARE [Concomitant]
     Dosage: UNK
     Route: 048
  11. PROSTAL L [Concomitant]
     Dosage: UNK
     Route: 048
  12. ALDOMET                            /00000101/ [Concomitant]
     Dosage: UNK
     Route: 048
  13. APRESOLINE [Concomitant]
     Dosage: UNK
     Route: 048

REACTIONS (2)
  - Death [Fatal]
  - Aortic aneurysm [Unknown]
